FAERS Safety Report 17248895 (Version 1)
Quarter: 2020Q1

REPORT INFORMATION
  Report Type: Spontaneous
  Country: FR (occurrence: FR)
  Receive Date: 20200108
  Receipt Date: 20200108
  Transmission Date: 20200409
  Serious: Yes (Hospitalization)
  Sender: FDA-Public Use
  Company Number: FR-MYLANLABS-2020M1001524

PATIENT
  Age: 5 Month
  Sex: Female
  Weight: 4.63 kg

DRUGS (2)
  1. VINCRISTINE SULFATE. [Suspect]
     Active Substance: VINCRISTINE SULFATE
     Indication: EPENDYMOMA
     Dosage: 1.125 MG/M2 SOIT 0.21 MG SUR 10 MIN A J1
     Route: 041
     Dates: start: 20190301, end: 20190301
  2. CARBOPLATIN. [Suspect]
     Active Substance: CARBOPLATIN
     Indication: EPENDYMOMA
     Dosage: 412.5 MG/M2 SOIT 77 MG SUR 1H A J1
     Route: 041
     Dates: start: 20190301, end: 20190301

REACTIONS (1)
  - Hydrocephalus [Recovered/Resolved]

NARRATIVE: CASE EVENT DATE: 20190312
